FAERS Safety Report 23653384 (Version 1)
Quarter: 2024Q1

REPORT INFORMATION
  Report Type: Spontaneous
  Country: IQ (occurrence: IQ)
  Receive Date: 20240320
  Receipt Date: 20240320
  Transmission Date: 20240409
  Serious: Yes (Death, Other)
  Sender: FDA-Public Use
  Company Number: IQ-009507513-2403IRQ005522

PATIENT
  Age: 31 Year
  Sex: Male

DRUGS (1)
  1. KEYTRUDA [Suspect]
     Active Substance: PEMBROLIZUMAB
     Indication: Squamous cell carcinoma of head and neck
     Dosage: UNK
     Dates: start: 202311

REACTIONS (4)
  - Malignant neoplasm progression [Fatal]
  - Fatigue [Fatal]
  - Palliative care [Unknown]
  - Therapy cessation [Unknown]
